FAERS Safety Report 23892951 (Version 1)
Quarter: 2024Q2

REPORT INFORMATION
  Report Type: Spontaneous
  Country: US (occurrence: None)
  Receive Date: 20240524
  Receipt Date: 20240524
  Transmission Date: 20240716
  Serious: No
  Sender: FDA-Public Use
  Company Number: US-ROCHE-3419444

PATIENT
  Age: 53 Year
  Sex: Female
  Weight: 71.732 kg

DRUGS (2)
  1. ACTEMRA [Suspect]
     Active Substance: TOCILIZUMAB
     Indication: Rheumatoid arthritis
     Dosage: STRENGTH: 162 MG/0.9ML PER DOSE
     Route: 058
     Dates: start: 2022, end: 20230905
  2. ACTEMRA [Suspect]
     Active Substance: TOCILIZUMAB

REACTIONS (7)
  - Dermatomyositis [Not Recovered/Not Resolved]
  - Product dose omission issue [Unknown]
  - Device use error [Unknown]
  - Product complaint [Unknown]
  - Drug delivery system malfunction [Unknown]
  - Needle issue [Unknown]
  - Intentional product misuse [Unknown]

NARRATIVE: CASE EVENT DATE: 20220101
